FAERS Safety Report 8799706 (Version 1)
Quarter: 2012Q4

REPORT INFORMATION
  Report Type: Spontaneous
  Country: None (occurrence: None)
  Receive Date: 20120914
  Receipt Date: 20120914
  Transmission Date: 20130627
  Serious: Yes (Death)
  Sender: FDA-Public Use
  Company Number: AUR-APL-2012-03905

PATIENT
  Age: 31 Year
  Sex: Male
  Weight: 85 kg

DRUGS (5)
  1. CITALOPRAM (CITALOPRAM) [Suspect]
     Indication: ANXIETY
     Dates: start: 20101121
  2. CITALOPRAM (CITALOPRAM) [Suspect]
     Indication: DEPRESSION
     Dates: start: 20101121
  3. CINCHOCAINE (CINCHOCAINE) [Concomitant]
  4. HYDROCORTISONE (HYDROCORTISONE) [Concomitant]
  5. MACROGOL (MACROGOL) [Concomitant]

REACTIONS (1)
  - Sudden death [None]
